FAERS Safety Report 15153733 (Version 1)
Quarter: 2018Q3

REPORT INFORMATION
  Report Type: Spontaneous
  Country: US (occurrence: US)
  Receive Date: 20180717
  Receipt Date: 20180717
  Transmission Date: 20181010
  Serious: No
  Sender: FDA-Public Use
  Company Number: US-SA-2018SA191138

PATIENT
  Sex: Female

DRUGS (1)
  1. PRALUENT [Suspect]
     Active Substance: ALIROCUMAB
     Indication: TYPE IIA HYPERLIPIDAEMIA
     Dosage: 75 MG, QOW
     Route: 058

REACTIONS (10)
  - Oropharyngeal pain [Not Recovered/Not Resolved]
  - Sneezing [Not Recovered/Not Resolved]
  - Nasal congestion [Not Recovered/Not Resolved]
  - Pyrexia [Not Recovered/Not Resolved]
  - Chills [Not Recovered/Not Resolved]
  - Cough [Not Recovered/Not Resolved]
  - Nasopharyngitis [Not Recovered/Not Resolved]
  - Myalgia [Not Recovered/Not Resolved]
  - Rhinorrhoea [Not Recovered/Not Resolved]
  - Influenza like illness [Not Recovered/Not Resolved]
